FAERS Safety Report 12560737 (Version 1)
Quarter: 2016Q3

REPORT INFORMATION
  Report Type: Spontaneous
  Country: US (occurrence: US)
  Receive Date: 20160715
  Receipt Date: 20160715
  Transmission Date: 20161109
  Serious: No
  Sender: FDA-Public Use
  Company Number: US-009507513-1606USA014355

PATIENT

DRUGS (1)
  1. ISENTRESS [Suspect]
     Active Substance: RALTEGRAVIR POTASSIUM
     Dosage: 2 TABLETS IN THE MORNING AND 2 TABLETS AT THE NIGHT FOR 1 WEEK
     Route: 048

REACTIONS (2)
  - No adverse event [Unknown]
  - Intentional overdose [Unknown]
